FAERS Safety Report 17729148 (Version 2)
Quarter: 2020Q2

REPORT INFORMATION
  Report Type: Spontaneous
  Country: CO (occurrence: CO)
  Receive Date: 20200430
  Receipt Date: 20200608
  Transmission Date: 20200714
  Serious: Yes (Hospitalization, Other)
  Sender: FDA-Public Use
  Company Number: CO-VIIV HEALTHCARE LIMITED-CO2020GSK069534

PATIENT
  Age: 0 Day
  Sex: Female
  Weight: 1.11 kg

DRUGS (6)
  1. MILRINONE [Suspect]
     Active Substance: MILRINONE
     Dosage: UNK 0.3 UG/KG/MIN
     Route: 064
     Dates: start: 20151014, end: 20151017
  2. ZIDOVUDINE. [Suspect]
     Active Substance: ZIDOVUDINE
     Indication: PROPHYLAXIS AGAINST HIV INFECTION
     Dosage: 2 MG/KG (BOLUS OF 2 MG/KG IN 1 HOUR AND THEN 1 MG/KG/HOUR UNTIL THE PROCEDURE WAS COMPLETED)
     Route: 064
     Dates: start: 20151021
  3. NORADRENALINE [Suspect]
     Active Substance: NOREPINEPHRINE
     Indication: VASOPRESSIVE THERAPY
     Dosage: 0.15 UG, SINGLE
     Route: 064
     Dates: start: 20151014
  4. NORADRENALINE [Suspect]
     Active Substance: NOREPINEPHRINE
     Dosage: UNK 0.25 UG/KG/MIN
     Route: 064
     Dates: end: 20151106
  5. MILRINONE [Suspect]
     Active Substance: MILRINONE
     Indication: PROPHYLAXIS
     Dosage: UNK 0.35 UG/KG/MIN
     Route: 064
     Dates: start: 20151014, end: 20151017
  6. MAGNESIUM SULFATE. [Suspect]
     Active Substance: MAGNESIUM SULFATE
     Indication: NERVOUS SYSTEM DISORDER PROPHYLAXIS
     Dosage: UNK

REACTIONS (2)
  - Foetal exposure during pregnancy [Unknown]
  - Premature baby [Unknown]

NARRATIVE: CASE EVENT DATE: 20151021
